FAERS Safety Report 8387926-1 (Version None)
Quarter: 2012Q2

REPORT INFORMATION
  Report Type: 
  Country: None (occurrence: None)
  Receive Date: 20120525
  Receipt Date: 20120517
  Transmission Date: 20120825
  Serious: Yes (Hospitalization, Disabling, Other)
  Sender: FDA-Public Use
  Company Number: US-MERCK-1203USA03303

PATIENT
  Age: 66 Year
  Sex: Female
  Weight: 93 kg

DRUGS (4)
  1. FOSAMAX [Suspect]
     Indication: OSTEOPOROSIS
     Route: 048
     Dates: start: 20020301, end: 20110101
  2. FOSAMAX [Suspect]
     Route: 048
     Dates: start: 20100301
  3. ALENDRONATE SODIUM [Suspect]
     Route: 065
     Dates: start: 20100601
  4. ALENDRONATE SODIUM [Suspect]
     Indication: OSTEOPOROSIS
     Route: 065
     Dates: start: 20080201

REACTIONS (25)
  - STRESS FRACTURE [None]
  - SPINAL DEFORMITY [None]
  - OSTEOARTHRITIS [None]
  - INTERVERTEBRAL DISC DISORDER [None]
  - PERIPHERAL SENSORIMOTOR NEUROPATHY [None]
  - ARTHROPATHY [None]
  - FEMUR FRACTURE [None]
  - SPINAL FRACTURE [None]
  - RENAL CYST HAEMORRHAGE [None]
  - NEUROPATHY PERIPHERAL [None]
  - MYOPATHY [None]
  - FOOT FRACTURE [None]
  - DEVICE FAILURE [None]
  - VISUAL ACUITY REDUCED [None]
  - HYPERTENSION [None]
  - BACK PAIN [None]
  - LOW TURNOVER OSTEOPATHY [None]
  - OSTEOPOROSIS [None]
  - SPINAL OSTEOARTHRITIS [None]
  - VERTEBRAL FORAMINAL STENOSIS [None]
  - DIVERTICULUM [None]
  - GALLBLADDER DISORDER [None]
  - ADVERSE DRUG REACTION [None]
  - RENAL CYST [None]
  - PAIN IN EXTREMITY [None]
